FAERS Safety Report 25795583 (Version 1)
Quarter: 2025Q3

REPORT INFORMATION
  Report Type: Spontaneous
  Country: US (occurrence: None)
  Receive Date: 20250911
  Receipt Date: 20250911
  Transmission Date: 20251021
  Serious: Yes (Death, Hospitalization)
  Sender: FDA-CTU
  Company Number: None

PATIENT
  Age: 71 Year
  Sex: Female

DRUGS (1)
  1. PIRFENIDONE [Suspect]
     Active Substance: PIRFENIDONE
     Indication: Interstitial lung disease
     Dosage: FREQUENCY : 3 TIMES A DAY;?
     Route: 048
     Dates: start: 20250623, end: 20250903

REACTIONS (6)
  - Interstitial lung disease [None]
  - Pyrexia [None]
  - Condition aggravated [None]
  - Acute respiratory failure [None]
  - Respiratory failure [None]
  - Immunodeficiency [None]

NARRATIVE: CASE EVENT DATE: 20250904
